FAERS Safety Report 5306408-4 (Version None)
Quarter: 2007Q2

REPORT INFORMATION
  Report Type: 
  Country: None (occurrence: None)
  Receive Date: 20070424
  Receipt Date: 20070411
  Transmission Date: 20071010
  Serious: Yes (Hospitalization)
  Sender: FDA-Public Use
  Company Number: JP-GENENTECH-238240

PATIENT
  Sex: Male
  Weight: 54.9 kg

DRUGS (3)
  1. BEVACIZUMAB [Suspect]
     Indication: COLORECTAL CANCER METASTATIC
     Dosage: 404 MG, Q3W
     Route: 042
     Dates: start: 20060802
  2. CAPECITABINE [Suspect]
     Indication: COLORECTAL CANCER METASTATIC
     Dosage: 2 UNK, QD
     Route: 048
     Dates: start: 20060216, end: 20070301
  3. OXALIPLATIN [Suspect]
     Indication: COLORECTAL CANCER METASTATIC
     Dosage: 199 MG, Q3W
     Route: 042
     Dates: start: 20060802

REACTIONS (1)
  - GASTRIC VARICES HAEMORRHAGE [None]
